FAERS Safety Report 5644265-7 (Version None)
Quarter: 2008Q1

REPORT INFORMATION
  Report Type: 
  Country: None (occurrence: None)
  Receive Date: 20080227
  Receipt Date: 20080215
  Transmission Date: 20080703
  Serious: Yes (Other)
  Sender: FDA-Public Use
  Company Number: 2008BI002024

PATIENT
  Age: 62 Year
  Sex: Female

DRUGS (3)
  1. AVONEX [Suspect]
     Indication: MULTIPLE SCLEROSIS
  2. . [Suspect]
  3. . [Suspect]

REACTIONS (2)
  - BASAL CELL CARCINOMA [None]
  - POST PROCEDURAL HAEMORRHAGE [None]
